FAERS Safety Report 25617962 (Version 2)
Quarter: 2025Q3

REPORT INFORMATION
  Report Type: Report from Study
  Country: BR (occurrence: BR)
  Receive Date: 20250729
  Receipt Date: 20250801
  Transmission Date: 20251020
  Serious: Yes (Other)
  Sender: SANOFI AVENTIS
  Company Number: BR-SANOFI-02596916

PATIENT
  Sex: Male

DRUGS (3)
  1. DUPILUMAB [Suspect]
     Active Substance: DUPILUMAB
     Indication: Chronic obstructive pulmonary disease
     Dosage: 300 MG, QOW
     Route: 065
     Dates: start: 20241024, end: 20250626
  2. XENICAL [Suspect]
     Active Substance: ORLISTAT
     Indication: Hepatic steatosis
     Route: 065
  3. SAXENDA [Suspect]
     Active Substance: LIRAGLUTIDE
     Indication: Increased appetite
     Route: 065

REACTIONS (11)
  - Paralysis [Recovering/Resolving]
  - Abdominal rigidity [Recovering/Resolving]
  - Gastritis [Recovering/Resolving]
  - Respiratory disorder [Recovering/Resolving]
  - Fatigue [Recovering/Resolving]
  - Oxygen saturation decreased [Recovering/Resolving]
  - Increased appetite [Recovering/Resolving]
  - Hepatic steatosis [Unknown]
  - Dyspnoea [Recovering/Resolving]
  - Weight decreased [Unknown]
  - Therapeutic response unexpected [Unknown]

NARRATIVE: CASE EVENT DATE: 20250101
